FAERS Safety Report 16017825 (Version 1)
Quarter: 2019Q1

REPORT INFORMATION
  Report Type: Spontaneous
  Country: US (occurrence: US)
  Receive Date: 20190228
  Receipt Date: 20190228
  Transmission Date: 20190418
  Serious: Yes (Hospitalization)
  Sender: FDA-Public Use
  Company Number: None

PATIENT
  Age: 12 Year
  Sex: Male

DRUGS (1)
  1. XOLAIR [Suspect]
     Active Substance: OMALIZUMAB
     Indication: ASTHMA
     Dosage: ?          OTHER FREQUENCY:EVERY 2 WEEKS;?
     Route: 058
     Dates: start: 20190221, end: 20190221

REACTIONS (7)
  - Dizziness [None]
  - Nasal congestion [None]
  - Nausea [None]
  - Dyspnoea [None]
  - Headache [None]
  - Dysphonia [None]
  - Abdominal pain [None]

NARRATIVE: CASE EVENT DATE: 20190221
